FAERS Safety Report 13327212 (Version 2)
Quarter: 2017Q4

REPORT INFORMATION
  Report Type: Spontaneous
  Country: US (occurrence: US)
  Receive Date: 20170313
  Receipt Date: 20171128
  Transmission Date: 20180320
  Serious: No
  Sender: FDA-Public Use
  Company Number: US-JNJFOC-20161210144

PATIENT
  Age: 60 Year
  Sex: Female
  Weight: 53.52 kg

DRUGS (8)
  1. PROPECIA [Suspect]
     Active Substance: FINASTERIDE
     Indication: ALOPECIA
     Dosage: WEEK
     Route: 065
     Dates: start: 201701, end: 201701
  2. SPIRONOLACTONE. [Suspect]
     Active Substance: SPIRONOLACTONE
     Indication: ALOPECIA
     Route: 065
     Dates: start: 201701, end: 201701
  3. CALCIUM [Concomitant]
     Active Substance: CALCIUM
     Indication: OSTEOPOROSIS PROPHYLAXIS
     Route: 065
  4. PROGESTERONE. [Suspect]
     Active Substance: PROGESTERONE
     Indication: ALOPECIA
     Dosage: 1 DAY
     Route: 065
     Dates: start: 20170101
  5. WOMENS ROGAINE UNSCENTED [Suspect]
     Active Substance: MINOXIDIL
     Indication: ALOPECIA
     Dosage: DOSE- 1/4 CAPFUL. FREQUENCY: 5 DAYS A WEEK.
     Route: 061
     Dates: start: 201702
  6. SPIRONOLACTONE. [Suspect]
     Active Substance: SPIRONOLACTONE
     Indication: ALOPECIA
     Dosage: MONTH
     Route: 065
  7. WOMENS ROGAINE UNSCENTED [Suspect]
     Active Substance: MINOXIDIL
     Indication: ALOPECIA
     Dosage: DOSAGE LESS THAN A HALF A CAP FULL
     Route: 061
     Dates: start: 20161203, end: 201701
  8. ESTRADIOL. [Suspect]
     Active Substance: ESTRADIOL
     Indication: ALOPECIA
     Route: 065
     Dates: start: 20170101

REACTIONS (5)
  - Underdose [Not Recovered/Not Resolved]
  - Nausea [Not Recovered/Not Resolved]
  - Expired product administered [Not Recovered/Not Resolved]
  - Alopecia [Not Recovered/Not Resolved]
  - Dizziness [Not Recovered/Not Resolved]

NARRATIVE: CASE EVENT DATE: 20161203
